FAERS Safety Report 8900904 (Version 3)
Quarter: 2012Q4

REPORT INFORMATION
  Report Type: 
  Country: US (occurrence: US)
  Receive Date: 20121109
  Receipt Date: 20121204
  Transmission Date: 20130627
  Serious: Yes (Other)
  Sender: FDA-Public Use
  Company Number: US-UCBSA-039103

PATIENT
  Age: 36 Year
  Sex: Female

DRUGS (2)
  1. CIMZIA [Suspect]
     Indication: CROHN^S DISEASE
     Route: 058
     Dates: start: 20090728
  2. PRENATAL VITAMIN [Concomitant]

REACTIONS (3)
  - Abortion spontaneous [Unknown]
  - Streptococcal infection [Recovered/Resolved]
  - Pregnancy [Recovered/Resolved]
